FAERS Safety Report 5712278-2 (Version None)
Quarter: 2008Q2

REPORT INFORMATION
  Report Type: 
  Country: None (occurrence: None)
  Receive Date: 20080421
  Receipt Date: 20080421
  Transmission Date: 20081010
  Serious: Yes (Hospitalization)
  Sender: FDA-Public Use
  Company Number: None

PATIENT
  Age: 42 Year
  Sex: Male
  Weight: 90.7194 kg

DRUGS (2)
  1. FENTANYL-100 [Suspect]
     Indication: BACK PAIN
     Dates: start: 20050801, end: 20070301
  2. FENTANYL-75 [Suspect]
     Indication: BACK PAIN
     Dates: start: 20050801, end: 20070301

REACTIONS (2)
  - ABDOMINAL PAIN UPPER [None]
  - FEELING ABNORMAL [None]
